FAERS Safety Report 5326513-6 (Version None)
Quarter: 2007Q2

REPORT INFORMATION
  Report Type: 
  Country: None (occurrence: None)
  Receive Date: 20070516
  Receipt Date: 20070511
  Transmission Date: 20071010
  Serious: Yes (Life-Threatening)
  Sender: FDA-Public Use
  Company Number: FR-ASTRAZENECA-2007CG00747

PATIENT
  Age: 38 Year
  Sex: Female

DRUGS (6)
  1. XYLOCAINE [Suspect]
     Indication: EPIDURAL ANAESTHESIA
     Route: 008
     Dates: start: 20070423, end: 20070423
  2. NAROPEINE [Concomitant]
     Indication: EPIDURAL ANAESTHESIA
     Route: 008
     Dates: start: 20070423, end: 20070423
  3. NAROPEINE [Concomitant]
     Route: 008
     Dates: start: 20070423, end: 20070423
  4. SUFENTA [Concomitant]
     Indication: EPIDURAL ANAESTHESIA
     Dates: start: 20070423
  5. DAFLON [Concomitant]
     Indication: VENOUS INSUFFICIENCY
  6. EPINEPHRINE [Concomitant]
     Route: 008
     Dates: start: 20070423

REACTIONS (4)
  - DISTURBANCE IN ATTENTION [None]
  - GRAND MAL CONVULSION [None]
  - HYPOTENSION [None]
  - OVERDOSE [None]
